FAERS Safety Report 14432331 (Version 1)
Quarter: 2018Q1

REPORT INFORMATION
  Report Type: Spontaneous
  Country: BE (occurrence: BE)
  Receive Date: 20180124
  Receipt Date: 20180124
  Transmission Date: 20180509
  Serious: Yes (Hospitalization, Other)
  Sender: FDA-Public Use
  Company Number: BE-ROCHE-2058670

PATIENT
  Age: 72 Year
  Sex: Male

DRUGS (5)
  1. CYMEVENE [Suspect]
     Active Substance: GANCICLOVIR
     Route: 065
     Dates: start: 201710
  2. PROGRAFT [Concomitant]
     Active Substance: TACROLIMUS
     Indication: GRAFT VERSUS HOST DISEASE IN SKIN
  3. PREDNISOLONE. [Concomitant]
     Active Substance: PREDNISOLONE
     Indication: GRAFT VERSUS HOST DISEASE IN SKIN
  4. CYMEVENE [Suspect]
     Active Substance: GANCICLOVIR
     Route: 065
     Dates: start: 201712
  5. CYMEVENE [Suspect]
     Active Substance: GANCICLOVIR
     Indication: CYTOMEGALOVIRUS INFECTION
     Route: 065
     Dates: start: 201707

REACTIONS (2)
  - Bone marrow failure [Unknown]
  - Cytomegalovirus infection [Recovered/Resolved]

NARRATIVE: CASE EVENT DATE: 201710
